FAERS Safety Report 9522934 (Version 1)
Quarter: 2013Q1

REPORT INFORMATION
  Report Type: Spontaneous
  Country: US (occurrence: None)
  Receive Date: 20130305
  Receipt Date: 20130305
  Transmission Date: 20140127
  Serious: Yes (Other)
  Sender: FDA-Public Use
  Company Number: 163-21880-12031188

PATIENT
  Age: 60 Year
  Sex: Female

DRUGS (1)
  1. REVLIMID (LENALIDOMIDE) (CAPSULES) [Suspect]
     Indication: PLASMA CELL MYELOMA
     Dosage: QD X 14 DAYS
     Route: 048
     Dates: start: 20100824, end: 20101007

REACTIONS (3)
  - Abdominal pain upper [None]
  - Gastrointestinal pain [None]
  - Muscle spasms [None]
